FAERS Safety Report 18924758 (Version 1)
Quarter: 2021Q1

REPORT INFORMATION
  Report Type: Spontaneous
  Country: PL (occurrence: PL)
  Receive Date: 20210222
  Receipt Date: 20210222
  Transmission Date: 20210420
  Serious: Yes (Other)
  Sender: FDA-Public Use
  Company Number: PL-ELI_LILLY_AND_COMPANY-PL202102008283

PATIENT
  Weight: 3 kg

DRUGS (2)
  1. LIPROLOG LISPRO [Suspect]
     Active Substance: INSULIN LISPRO
     Indication: GESTATIONAL DIABETES
     Dosage: 2?4 U, UNKNOWN
     Route: 064
     Dates: start: 201605
  2. HUMULIN N [Suspect]
     Active Substance: INSULIN HUMAN
     Indication: GESTATIONAL DIABETES
     Dosage: 2?4 U, UNKNOWN
     Route: 064
     Dates: start: 201605

REACTIONS (5)
  - Premature baby [Recovered/Resolved]
  - Foetal exposure during pregnancy [Recovered/Resolved]
  - Umbilical cord around neck [Recovered/Resolved]
  - Apgar score low [Recovered/Resolved]
  - Hypotonia [Recovered/Resolved]

NARRATIVE: CASE EVENT DATE: 2016
